FAERS Safety Report 4607882-9 (Version None)
Quarter: 2005Q1

REPORT INFORMATION
  Report Type: 
  Country: None (occurrence: None)
  Receive Date: 20050310
  Receipt Date: 20050225
  Transmission Date: 20050727
  Serious: Yes (Hospitalization)
  Sender: FDA-Public Use
  Company Number: 2004AP06414

PATIENT
  Age: 80 Year
  Sex: Male

DRUGS (7)
  1. CASODEX [Suspect]
     Indication: PROSTATE CANCER
     Dosage: 80 MG DAILY PO
     Route: 048
  2. ZOLADEX [Suspect]
     Indication: PROSTATE CANCER
     Dosage: 10.8 MG Q3MO SQ
     Route: 058
     Dates: start: 20040406
  3. THEO-DUR [Concomitant]
  4. PREDONINE [Concomitant]
  5. SEDIEL [Concomitant]
  6. GASTER [Concomitant]
  7. SENNOSIDE [Concomitant]

REACTIONS (1)
  - ASTHMA [None]
